FAERS Safety Report 7795666-2 (Version None)
Quarter: 2011Q4

REPORT INFORMATION
  Report Type: 
  Country: None (occurrence: None)
  Receive Date: 20111004
  Receipt Date: 20110927
  Transmission Date: 20120403
  Serious: Yes (Other)
  Sender: FDA-Public Use
  Company Number: JP-GLAXOSMITHKLINE-B0751651A

PATIENT
  Sex: Female

DRUGS (1)
  1. ARRANON [Suspect]
     Indication: T-CELL TYPE ACUTE LEUKAEMIA
     Dosage: 1500MGM2 TWICE PER DAY
     Route: 042
     Dates: start: 20110909

REACTIONS (1)
  - HERPES ZOSTER [None]
